FAERS Safety Report 18841746 (Version 1)
Quarter: 2021Q1

REPORT INFORMATION
  Report Type: Spontaneous
  Country: FR (occurrence: FR)
  Receive Date: 20210204
  Receipt Date: 20210204
  Transmission Date: 20210419
  Serious: Yes (Other)
  Sender: FDA-Public Use
  Company Number: FR-TEVA-2021-FR-1875182

PATIENT
  Age: 42 Year
  Sex: Female
  Weight: 140 kg

DRUGS (10)
  1. VENLAFAXINE [Suspect]
     Active Substance: VENLAFAXINE HYDROCHLORIDE
     Indication: MIXED ANXIETY AND DEPRESSIVE DISORDER
     Dosage: 37.5MILLIGRAM
     Route: 048
     Dates: start: 20200907
  2. THERALENE 5 MG, COMPRIME PELLICULE SECABLE [Suspect]
     Active Substance: TRIMEPRAZINE
     Indication: MIXED ANXIETY AND DEPRESSIVE DISORDER
     Dosage: 1DOSAGEFORM DRY FILM TABLET
     Route: 048
     Dates: start: 202002
  3. PERINDOPRIL [Concomitant]
     Active Substance: PERINDOPRIL
     Route: 048
  4. LARGACTIL 25 MG, COMPRIME PELLICULE SECABLE [Suspect]
     Active Substance: CHLORPROMAZINE HYDROCHLORIDE
     Indication: MIXED ANXIETY AND DEPRESSIVE DISORDER
     Dosage: 3DOSAGEFORM
     Route: 048
     Dates: start: 20200907
  5. ZOPICLONE [Concomitant]
     Active Substance: ZOPICLONE
     Route: 048
  6. MIRTAZAPINE. [Suspect]
     Active Substance: MIRTAZAPINE
     Indication: MIXED ANXIETY AND DEPRESSIVE DISORDER
     Dosage: 15MILLIGRAM
     Route: 048
     Dates: start: 202002
  7. FUROSEMIDE. [Concomitant]
     Active Substance: FUROSEMIDE
     Route: 048
  8. TERCIAN 25 MG, COMPRIME PELLICULE SECABLE [Suspect]
     Active Substance: CYAMEMAZINE
     Indication: MIXED ANXIETY AND DEPRESSIVE DISORDER
     Dosage: 4DOSAGEFORM
     Route: 048
     Dates: start: 202002
  9. ACIDE FOLIQUE [Concomitant]
     Active Substance: FOLIC ACID
     Route: 048
  10. LANSOPRAZOLE. [Concomitant]
     Active Substance: LANSOPRAZOLE
     Route: 048

REACTIONS (2)
  - Aortic thrombosis [Recovering/Resolving]
  - Venous thrombosis [Recovering/Resolving]

NARRATIVE: CASE EVENT DATE: 20201003
